FAERS Safety Report 6013975-4 (Version None)
Quarter: 2008Q4

REPORT INFORMATION
  Report Type: 
  Country: None (occurrence: None)
  Receive Date: 20081219
  Receipt Date: 20081205
  Transmission Date: 20090506
  Serious: Yes (Hospitalization)
  Sender: FDA-Public Use
  Company Number: DE-PFIZER INC-2006082353

PATIENT

DRUGS (9)
  1. SUNITINIB MALATE [Suspect]
     Indication: NON-SMALL CELL LUNG CANCER
     Dosage: 50 MG, INTERVAL DAY7-DAY 15
     Route: 048
     Dates: start: 20060420, end: 20060511
  2. CISPLATIN [Suspect]
     Indication: NON-SMALL CELL LUNG CANCER
     Dosage: 80 MG/M2, EVERY 3 WEEKS
     Route: 042
     Dates: start: 20060427, end: 20060427
  3. GEMCITABINE [Suspect]
     Indication: NON-SMALL CELL LUNG CANCER
     Dosage: 1000 MG/M2, INTERVAL DAY1+8
     Dates: start: 20060427, end: 20060526
  4. OXAZEPAM [Concomitant]
     Route: 048
     Dates: start: 20060427, end: 20060523
  5. GRANISETRON [Concomitant]
     Route: 048
     Dates: start: 20060427, end: 20060508
  6. ISOSORBIDE DINITRATE [Concomitant]
     Route: 048
     Dates: start: 19920101
  7. GRANOCYTE [Concomitant]
     Route: 065
     Dates: start: 20060512, end: 20060514
  8. PANTOPRAZOL [Concomitant]
     Route: 048
     Dates: start: 20060517
  9. NYSTATIN [Concomitant]
     Route: 048
     Dates: start: 20060518, end: 20060530

REACTIONS (3)
  - BONE MARROW TOXICITY [None]
  - PERFORMANCE STATUS DECREASED [None]
  - PNEUMONIA [None]
